FAERS Safety Report 4499123-0 (Version None)
Quarter: 2004Q4

REPORT INFORMATION
  Report Type: 
  Country: None (occurrence: None)
  Receive Date: 20041111
  Receipt Date: 20041103
  Transmission Date: 20050328
  Serious: Yes (Death)
  Sender: FDA-Public Use
  Company Number: US-JNJFOC-20040908251

PATIENT
  Age: 22 Year
  Sex: Female

DRUGS (4)
  1. FENTANYL [Suspect]
     Indication: DRUG USE FOR UNKNOWN INDICATION
     Route: 049
  2. ALPRAZOLAM [Suspect]
     Indication: DRUG USE FOR UNKNOWN INDICATION
     Route: 049
  3. OXYCODONE HCL [Suspect]
     Indication: INTENTIONAL MISUSE
     Route: 065
  4. ALCOHOL [Concomitant]

REACTIONS (8)
  - ACCIDENTAL DEATH [None]
  - CARDIAC ARREST [None]
  - CARDIO-RESPIRATORY ARREST [None]
  - DRUG ABUSER [None]
  - DRUG TOXICITY [None]
  - ELECTROCARDIOGRAM ST SEGMENT ELEVATION [None]
  - INTENTIONAL MISUSE [None]
  - RESPIRATORY ARREST [None]
